FAERS Safety Report 5959839-3 (Version None)
Quarter: 2008Q4

REPORT INFORMATION
  Report Type: 
  Country: None (occurrence: None)
  Receive Date: 20081120
  Receipt Date: 20081112
  Transmission Date: 20090506
  Serious: Yes (Hospitalization)
  Sender: FDA-Public Use
  Company Number: B0543609A

PATIENT
  Age: 52 Year
  Sex: Female
  Weight: 55 kg

DRUGS (2)
  1. ARIXTRA [Suspect]
     Indication: DRUG USE FOR UNKNOWN INDICATION
     Route: 058
  2. CORTICOSTEROIDS [Concomitant]
     Route: 065

REACTIONS (4)
  - HAEMATOMA [None]
  - HAEMORRHAGIC ANAEMIA [None]
  - SKIN DISORDER [None]
  - SKIN NECROSIS [None]
